FAERS Safety Report 18627846 (Version 1)
Quarter: 2020Q4

REPORT INFORMATION
  Report Type: Spontaneous
  Country: DE (occurrence: DE)
  Receive Date: 20201217
  Receipt Date: 20201217
  Transmission Date: 20210114
  Serious: No
  Sender: FDA-Public Use
  Company Number: DE-PFIZER INC-2020467164

PATIENT
  Age: 38 Year
  Sex: Female

DRUGS (1)
  1. SAYANA [Suspect]
     Active Substance: MEDROXYPROGESTERONE
     Indication: CONTRACEPTION
     Dosage: SINGLE DOSE EVERY 13 WEEKS
     Route: 058

REACTIONS (3)
  - Drug dose omission by device [Unknown]
  - Product administered at inappropriate site [Unknown]
  - Needle issue [Unknown]

NARRATIVE: CASE EVENT DATE: 202010
